FAERS Safety Report 5492307-4 (Version None)
Quarter: 2007Q4

REPORT INFORMATION
  Report Type: 
  Country: None (occurrence: None)
  Receive Date: 20071015
  Receipt Date: 20070724
  Transmission Date: 20080405
  Serious: No
  Sender: FDA-Public Use
  Company Number: 2007SP002616

PATIENT
  Age: 64 Year
  Sex: Male
  Weight: 90.7194 kg

DRUGS (2)
  1. LUNESTA [Suspect]
     Indication: SLEEP APNOEA SYNDROME
     Dosage: 3 MG; ORAL
     Route: 048
     Dates: start: 20070608, end: 20070710
  2. TRAZODONE HCL [Concomitant]

REACTIONS (1)
  - WEIGHT INCREASED [None]
